FAERS Safety Report 11720889 (Version 1)
Quarter: 2015Q4

REPORT INFORMATION
  Report Type: Spontaneous
  Country: US (occurrence: US)
  Receive Date: 20151110
  Receipt Date: 20151110
  Transmission Date: 20160304
  Serious: No
  Sender: FDA-Public Use
  Company Number: US-SA-2015SA127793

PATIENT
  Sex: Female

DRUGS (2)
  1. PRALUENT [Suspect]
     Active Substance: ALIROCUMAB
     Dosage: FREQUENCY: EVERY 2 WEEKS
     Route: 065
     Dates: start: 201507
  2. ALIROCUMAB PREFILLED PEN [Concomitant]
     Dates: start: 201507

REACTIONS (2)
  - Myalgia [Unknown]
  - Asthenia [Unknown]
